FAERS Safety Report 5564910-4 (Version None)
Quarter: 2007Q4

REPORT INFORMATION
  Report Type: 
  Country: None (occurrence: None)
  Receive Date: 20071218
  Receipt Date: 20071210
  Transmission Date: 20080405
  Serious: Yes (Death, Hospitalization)
  Sender: FDA-Public Use
  Company Number: A0648608A

PATIENT
  Sex: Female
  Weight: 65.9 kg

DRUGS (12)
  1. SEREVENT [Suspect]
     Indication: ASTHMA
     Dosage: 2PUFF TWICE PER DAY
     Route: 055
     Dates: start: 20030101, end: 20050415
  2. SEREVENT [Suspect]
     Dosage: 2PUFF TWICE PER DAY
     Route: 055
     Dates: start: 19950425, end: 20030101
  3. FLOVENT [Concomitant]
     Indication: ASTHMA
     Dosage: 2PUFF TWICE PER DAY
     Route: 055
  4. ALBUTEROL [Concomitant]
  5. MAGNESIUM [Concomitant]
  6. VANCERIL [Concomitant]
  7. PREDNISONE [Concomitant]
  8. ACCOLATE [Concomitant]
  9. CITRACAL [Concomitant]
  10. VITAMINS [Concomitant]
  11. FLONASE [Concomitant]
  12. NASACORT [Concomitant]

REACTIONS (28)
  - ANOXIC ENCEPHALOPATHY [None]
  - ANXIETY [None]
  - APNOEA [None]
  - ASPHYXIA [None]
  - ASTHMA [None]
  - BRONCHIAL HYPERREACTIVITY [None]
  - BRONCHOSPASM [None]
  - CARDIO-RESPIRATORY ARREST [None]
  - COMA [None]
  - COUGH [None]
  - CYANOSIS [None]
  - DECREASED APPETITE [None]
  - DYSPNOEA [None]
  - HYPOTENSION [None]
  - HYPOXIA [None]
  - LOSS OF CONSCIOUSNESS [None]
  - LUNG HYPERINFLATION [None]
  - MYOCLONUS [None]
  - NASAL CONGESTION [None]
  - PAIN [None]
  - RESPIRATORY DISTRESS [None]
  - RESPIRATORY TRACT CONGESTION [None]
  - RHINORRHOEA [None]
  - STATUS EPILEPTICUS [None]
  - UNRESPONSIVE TO STIMULI [None]
  - UPPER RESPIRATORY TRACT INFECTION [None]
  - VOMITING [None]
  - WHEEZING [None]
